FAERS Safety Report 9216553 (Version 1)
Quarter: 2013Q2

REPORT INFORMATION
  Report Type: Other
  Country: US (occurrence: US)
  Receive Date: 20130408
  Receipt Date: 20130408
  Transmission Date: 20140414
  Serious: Yes (Hospitalization)
  Sender: FDA-Public Use
  Company Number: US-BRISTOL-MYERS SQUIBB COMPANY-18727016

PATIENT
  Age: 3 Year
  Sex: Male

DRUGS (12)
  1. CETUXIMAB [Suspect]
     Indication: MEDULLOBLASTOMA
     Dosage: ON DAYS 7,14 AND 21
  2. CARBOPLATIN [Suspect]
     Indication: MEDULLOBLASTOMA
  3. CISPLATIN [Suspect]
     Indication: MEDULLOBLASTOMA
  4. CYCLOPHOSPHAMIDE [Concomitant]
     Indication: MEDULLOBLASTOMA
     Dosage: DAY 1 AND 2
  5. VINBLASTINE [Concomitant]
     Indication: MEDULLOBLASTOMA
  6. GABAPENTIN [Concomitant]
     Indication: NEURALGIA
  7. MEGESTROL ACETATE [Concomitant]
     Indication: INCREASED APPETITE
  8. PENTAMIDINE [Concomitant]
     Indication: PROPHYLAXIS
  9. ONDANSETRON [Concomitant]
     Indication: NAUSEA
  10. LORAZEPAM [Concomitant]
     Indication: NAUSEA
  11. DOCUSATE [Concomitant]
     Indication: CONSTIPATION
  12. POLYETHYLENE GLYCOL [Concomitant]
     Indication: CONSTIPATION

REACTIONS (3)
  - Tetany [Recovering/Resolving]
  - Hypomagnesaemia [Recovering/Resolving]
  - Off label use [Unknown]
